FAERS Safety Report 6196899-1 (Version None)
Quarter: 2009Q2

REPORT INFORMATION
  Report Type: 
  Country: None (occurrence: None)
  Receive Date: 20090518
  Receipt Date: 20090518
  Transmission Date: 20091009
  Serious: No
  Sender: FDA-Public Use
  Company Number: None

PATIENT
  Sex: Male
  Weight: 93 kg

DRUGS (3)
  1. VIVAGLOBIN [Suspect]
     Indication: CHRONIC INFLAMMATORY DEMYELINATING POLYRADICULONEUROPATHY
     Dosage: 4.8 GMS/30 ML WEEKLY SQ
     Route: 058
     Dates: start: 20090423
  2. VIVAGLOBIN [Suspect]
     Indication: IMMUNODEFICIENCY COMMON VARIABLE
     Dosage: 4.8 GMS/30 ML WEEKLY SQ
     Route: 058
     Dates: start: 20090423
  3. VIVAGLOBIN [Suspect]

REACTIONS (1)
  - PAIN [None]
